FAERS Safety Report 4468380-9 (Version None)
Quarter: 2004Q4

REPORT INFORMATION
  Report Type: 
  Country: None (occurrence: None)
  Receive Date: 20041007
  Receipt Date: 20040831
  Transmission Date: 20050328
  Serious: Yes (Hospitalization)
  Sender: FDA-Public Use
  Company Number: JP-GLAXOSMITHKLINE-B0344580A

PATIENT
  Age: 74 Year
  Sex: Male

DRUGS (10)
  1. VALTREX [Suspect]
     Indication: HERPES ZOSTER
     Route: 048
     Dates: start: 20030117, end: 20030121
  2. EXCEGRAN [Concomitant]
     Route: 048
  3. ALEVIATIN [Concomitant]
     Route: 065
  4. COMELIAN [Concomitant]
     Route: 048
  5. UNSPECIFIED DRUGS [Concomitant]
     Route: 048
  6. 8-HOUR BAYER [Concomitant]
     Route: 048
  7. WARFARIN SODIUM [Concomitant]
     Route: 048
  8. ZANTAC [Concomitant]
     Route: 065
  9. MAGNESIUM OXIDE [Concomitant]
     Route: 065
  10. PURSENNID [Concomitant]
     Route: 065

REACTIONS (7)
  - BLOOD CREATININE INCREASED [None]
  - BLOOD UREA INCREASED [None]
  - DIARRHOEA [None]
  - ENCEPHALOPATHY [None]
  - GAIT DISTURBANCE [None]
  - HALLUCINATION [None]
  - RENAL FAILURE ACUTE [None]
